FAERS Safety Report 16622317 (Version 1)
Quarter: 2019Q3

REPORT INFORMATION
  Report Type: Spontaneous
  Country: DE (occurrence: DE)
  Receive Date: 20190723
  Receipt Date: 20190723
  Transmission Date: 20191004
  Serious: Yes (Hospitalization)
  Sender: FDA-Public Use
  Company Number: DE-MYLANLABS-2019M1068641

PATIENT
  Age: 59 Year
  Sex: Female

DRUGS (7)
  1. LEPONEX [Suspect]
     Active Substance: CLOZAPINE
     Indication: PARANOIA
     Dosage: 100MG-100MG-150MG
     Route: 048
     Dates: start: 20010523
  2. LEPONEX [Suspect]
     Active Substance: CLOZAPINE
     Indication: DELUSIONAL DISORDER, PERSECUTORY TYPE
     Dosage: 100 MG, TID
     Route: 048
     Dates: end: 20010522
  3. NEUROCIL                           /00038602/ [Suspect]
     Active Substance: LEVOMEPROMAZINE MALEATE
     Indication: ANXIETY
     Dosage: 25 MG, TID
     Route: 048
  4. AKINETON [Concomitant]
     Active Substance: BIPERIDEN HYDROCHLORIDE
     Dosage: 1 MG/DAY
     Route: 048
  5. TAVOR (LORAZEPAM) [Concomitant]
     Active Substance: LORAZEPAM
     Dosage: 2 MG/DAY
     Route: 048
  6. LEPONEX [Suspect]
     Active Substance: CLOZAPINE
     Dosage: 100 MG, ONCE/SINGLE
     Route: 048
     Dates: start: 20010603, end: 20010603
  7. NEUROCIL                           /00038602/ [Suspect]
     Active Substance: LEVOMEPROMAZINE MALEATE
     Dosage: 25 MG, ONCE/SINGLE
     Route: 048
     Dates: start: 20010603

REACTIONS (2)
  - Fatigue [Recovered/Resolved]
  - Accidental overdose [Unknown]

NARRATIVE: CASE EVENT DATE: 20010603
